FAERS Safety Report 12327550 (Version 1)
Quarter: 2016Q2

REPORT INFORMATION
  Report Type: Spontaneous
  Country: US (occurrence: None)
  Receive Date: 20160502
  Receipt Date: 20160502
  Transmission Date: 20160815
  Serious: Yes (Hospitalization)
  Sender: FDA-Public Use
  Company Number: None

PATIENT
  Age: 9 Year
  Sex: Male
  Weight: 28.2 kg

DRUGS (10)
  1. DOXORUBICIN HYDROCHLORIDE. [Suspect]
     Active Substance: DOXORUBICIN HYDROCHLORIDE
     Dates: end: 20160302
  2. ONCASPAR [Suspect]
     Active Substance: PEGASPARGASE
     Dates: end: 20160413
  3. DAUNORUBICIN [Suspect]
     Active Substance: DAUNORUBICIN
     Dates: end: 20150916
  4. CYTARABINE. [Suspect]
     Active Substance: CYTARABINE
     Dates: end: 20160409
  5. DEXAMETHASONE. [Suspect]
     Active Substance: DEXAMETHASONE
     Dates: end: 20160308
  6. METHOTREXATE [Suspect]
     Active Substance: METHOTREXATE
     Dates: end: 20160406
  7. VINCRISTINE SULFATE. [Suspect]
     Active Substance: VINCRISTINE SULFATE
     Dates: end: 20160419
  8. CYCLOPHOSPHAMIDE. [Suspect]
     Active Substance: CYCLOPHOSPHAMIDE
     Dates: end: 20160330
  9. THIOGUANINE (6-TG) [Suspect]
     Active Substance: THIOGUANINE ANHYDROUS
     Dates: end: 20160412
  10. MERCAPTOPURINE. [Suspect]
     Active Substance: MERCAPTOPURINE
     Dates: end: 20151117

REACTIONS (15)
  - Pulmonary oedema [None]
  - Opportunistic infection [None]
  - Fungal infection [None]
  - Anaemia [None]
  - Hypophosphataemia [None]
  - Acute kidney injury [None]
  - Aspergillus infection [None]
  - Escherichia bacteraemia [None]
  - Skin lesion [None]
  - Febrile neutropenia [None]
  - Pulmonary mass [None]
  - Hypokalaemia [None]
  - Thrombocytopenia [None]
  - Candida test positive [None]
  - Ascites [None]

NARRATIVE: CASE EVENT DATE: 20160425
